FAERS Safety Report 4512971-3 (Version None)
Quarter: 2004Q4

REPORT INFORMATION
  Report Type: 
  Country: None (occurrence: None)
  Receive Date: 20041124
  Receipt Date: 20041111
  Transmission Date: 20050328
  Serious: Yes (Death, Hospitalization)
  Sender: FDA-Public Use
  Company Number: F03200400042

PATIENT
  Age: 52 Year
  Sex: Female

DRUGS (12)
  1. ELOXATIN [Suspect]
     Indication: COLORECTAL CANCER
     Dosage: 139 MILLIGRAM 1/1 CYCLE - INTRAVENOUS NOS
     Route: 042
     Dates: start: 20031201, end: 20031201
  2. CETUXIMAB - SOLUTION [Suspect]
     Indication: COLORECTAL CANCER
     Dosage: 403 MG 1/WEEK - INTRAVENOUS NOS
     Route: 042
     Dates: start: 20031201, end: 20031201
  3. LEUCOVORIN SOLUTION [Suspect]
     Indication: COLORECTAL CANCER
     Dosage: 326 MILLIGRAM 2/1 CYCLE - INTRAVENOUS NOS
     Route: 042
     Dates: start: 20031202, end: 20031202
  4. FLUOROURACIL [Suspect]
     Indication: COLORECTAL CANCER
     Dosage: 670 MILLIGRAM 2/1 CYCLE - INTRAVENOUS NOS
     Route: 042
     Dates: start: 20031201, end: 20031202
  5. FLUOROURACIL [Suspect]
     Indication: COLORECTAL CANCER
     Dosage: 978 MILLIGRAM 2/1 CYCLE INTRAVENOUS NOS
     Route: 042
     Dates: start: 20031203, end: 20031203
  6. WARFARIN SODIUM [Concomitant]
  7. LEVOFLOXACIN [Concomitant]
  8. FENTANYL CITRATE [Concomitant]
  9. HYDROCODONE [Concomitant]
  10. LORAZEPAM [Concomitant]
  11. POTASSIUM CHLORIDE [Concomitant]
  12. MORPHINE SULFATE [Concomitant]

REACTIONS (15)
  - ATELECTASIS [None]
  - COLORECTAL CANCER METASTATIC [None]
  - FUNGAEMIA [None]
  - GENERAL PHYSICAL HEALTH DETERIORATION [None]
  - INTESTINAL OBSTRUCTION [None]
  - KLEBSIELLA INFECTION [None]
  - LUNG INFECTION PSEUDOMONAL [None]
  - MALIGNANT NEOPLASM PROGRESSION [None]
  - METASTASES TO ABDOMINAL CAVITY [None]
  - OMENTUM NEOPLASM [None]
  - PANCYTOPENIA [None]
  - POST PROCEDURAL COMPLICATION [None]
  - SEPSIS [None]
  - SPUTUM CULTURE POSITIVE [None]
  - TORULOPSIS INFECTION [None]
